FAERS Safety Report 8326448-0 (Version None)
Quarter: 2012Q2

REPORT INFORMATION
  Report Type: 
  Country: None (occurrence: None)
  Receive Date: 20120501
  Receipt Date: 20120426
  Transmission Date: 20120825
  Serious: Yes (Hospitalization, Other)
  Sender: FDA-Public Use
  Company Number: PHHY2010CA60124

PATIENT
  Sex: Male

DRUGS (8)
  1. SANDOSTATIN LAR [Suspect]
     Dosage: 40 MG, QMO
     Route: 030
  2. SANDOSTATIN LAR [Suspect]
     Dosage: 60 MG, QMO
     Route: 030
  3. SANDOSTATIN LAR [Suspect]
     Indication: METASTATIC CARCINOID TUMOUR
     Dosage: 20 MG, QMO
     Route: 030
     Dates: start: 20100810
  4. SANDOSTATIN LAR [Suspect]
     Dosage: 30 MG, EVERY 4 WEEKS
     Route: 030
  5. SANDOSTATIN LAR [Suspect]
     Dosage: 40 MG, QMO
     Route: 030
  6. SANDOSTATIN LAR [Suspect]
     Dosage: 40 MG, EVERY 4 WEEKS
     Route: 030
  7. SANDOSTATIN LAR [Suspect]
     Dosage: 30 MG, QMO
  8. SANDOSTATIN LAR [Suspect]
     Dosage: 40 MG, EVERY 4 WEEKS
     Route: 030

REACTIONS (7)
  - CARDIAC VALVE DISEASE [None]
  - BLOOD PRESSURE INCREASED [None]
  - INJECTION SITE MASS [None]
  - GAIT DISTURBANCE [None]
  - INJECTION SITE PAIN [None]
  - DIARRHOEA [None]
  - URINE OUTPUT DECREASED [None]
